FAERS Safety Report 7707741-9 (Version None)
Quarter: 2011Q3

REPORT INFORMATION
  Report Type: 
  Country: None (occurrence: None)
  Receive Date: 20110824
  Receipt Date: 20110809
  Transmission Date: 20111222
  Serious: Yes (Disabling)
  Sender: FDA-Public Use
  Company Number: GB-WATSON-2011-12676

PATIENT
  Age: 78 Year
  Sex: Female
  Weight: 59.6 kg

DRUGS (6)
  1. GAVISCON                           /00237601/ [Concomitant]
     Indication: PRODUCT USED FOR UNKNOWN INDICATION
     Route: 048
  2. PARACETAMOL [Concomitant]
     Indication: PRODUCT USED FOR UNKNOWN INDICATION
     Route: 065
  3. ALENDRONATE SODIUM [Suspect]
     Indication: OSTEOPOROTIC FRACTURE
     Dosage: 70 MG, UNKNOWN
     Route: 048
     Dates: start: 20100911, end: 20110408
  4. CALCIUM WITH VITAMIN D             /00944201/ [Concomitant]
     Indication: PRODUCT USED FOR UNKNOWN INDICATION
     Route: 065
  5. OMEPRAZOLE [Concomitant]
     Indication: PRODUCT USED FOR UNKNOWN INDICATION
     Route: 065
  6. BENDROFLUMETHIAZIDE [Concomitant]
     Indication: PRODUCT USED FOR UNKNOWN INDICATION
     Route: 065

REACTIONS (3)
  - DENTAL DISCOMFORT [None]
  - OSTEONECROSIS OF JAW [None]
  - ORAL PAIN [None]
